FAERS Safety Report 13899149 (Version 4)
Quarter: 2017Q3

REPORT INFORMATION
  Report Type: Spontaneous
  Country: US (occurrence: US)
  Receive Date: 20170823
  Receipt Date: 20170928
  Transmission Date: 20171127
  Serious: No
  Sender: FDA-Public Use
  Company Number: US-ACTELION-A-NJ2017-158020

PATIENT
  Age: 60 Year
  Sex: Male

DRUGS (5)
  1. UPTRAVI [Suspect]
     Active Substance: SELEXIPAG
     Indication: PRODUCT USED FOR UNKNOWN INDICATION
     Dosage: UNK
     Route: 048
  2. REMODULIN [Concomitant]
     Active Substance: TREPROSTINIL
  3. AMBRISENTAN [Suspect]
     Active Substance: AMBRISENTAN
     Indication: PRODUCT USED FOR UNKNOWN INDICATION
     Dosage: 10 MG, QD
     Route: 065
  4. POTASSIUM [Concomitant]
     Active Substance: POTASSIUM
  5. ADCIRCA [Concomitant]
     Active Substance: TADALAFIL

REACTIONS (5)
  - Headache [Unknown]
  - Muscle spasms [Unknown]
  - Unevaluable event [Unknown]
  - Myalgia [Unknown]
  - Fluid retention [Unknown]
